FAERS Safety Report 8355131-0 (Version None)
Quarter: 2012Q2

REPORT INFORMATION
  Report Type: 
  Country: None (occurrence: None)
  Receive Date: 20120511
  Receipt Date: 20120507
  Transmission Date: 20120825
  Serious: Yes (Death, Hospitalization, Disabling, Other)
  Sender: FDA-Public Use
  Company Number: US-CELGENEUS-163-21880-11072300

PATIENT
  Sex: Female

DRUGS (8)
  1. MELOXICAM [Concomitant]
     Route: 065
  2. REVLIMID [Suspect]
     Dosage: 10 MILLIGRAM
     Route: 048
     Dates: start: 20110718, end: 20110801
  3. HYDROCHLOROTHIAZIDE [Concomitant]
     Route: 065
  4. ULORIC [Concomitant]
     Route: 065
  5. REVLIMID [Suspect]
     Dosage: 10 MILLIGRAM
     Route: 048
     Dates: start: 20110621, end: 20110712
  6. TRAMADOL HYDROCHLORIDE [Concomitant]
     Route: 065
  7. SYNTHROID [Concomitant]
     Route: 065
  8. DILTIAZEM HCL [Concomitant]
     Route: 065

REACTIONS (8)
  - RASH PAPULAR [None]
  - MYELODYSPLASTIC SYNDROME [None]
  - INFECTION [None]
  - HAEMORRHAGE [None]
  - NEUTROPENIA [None]
  - HAEMOGLOBIN DECREASED [None]
  - MALAISE [None]
  - PLATELET COUNT DECREASED [None]
